FAERS Safety Report 8935961 (Version 1)
Quarter: 2012Q4

REPORT INFORMATION
  Report Type: Spontaneous
  Country: US (occurrence: None)
  Receive Date: 20121121
  Receipt Date: 20121121
  Transmission Date: 20130627
  Serious: Yes (Other)
  Sender: FDA-Public Use
  Company Number: HA12-337-AE

PATIENT
  Age: 54 Year
  Weight: 46.72 kg

DRUGS (5)
  1. SULFAMETHOXAZOLE\TRIMETHOPRIM [Suspect]
     Indication: SINUS INFECTION
     Dosage: 1 tablets qd, oral
     Route: 048
     Dates: start: 201209
  2. METHIXAZOLE [Concomitant]
  3. CLOPIDOGREL SULFATE [Concomitant]
  4. OXYCODONE HYDROCHLORIDE/PARACETAMOL [Concomitant]
  5. SIMVASTATIN [Concomitant]

REACTIONS (6)
  - Blood albumin decreased [None]
  - Aspartate aminotransferase increased [None]
  - Alanine aminotransferase increased [None]
  - Basedow^s disease [None]
  - Blood iron decreased [None]
  - Weight decreased [None]
